FAERS Safety Report 18602923 (Version 1)
Quarter: 2020Q4

REPORT INFORMATION
  Report Type: Spontaneous
  Country: US (occurrence: US)
  Receive Date: 20201210
  Receipt Date: 20201210
  Transmission Date: 20210114
  Serious: No
  Sender: FDA-Public Use
  Company Number: US-PERRIGO-20US015794

PATIENT
  Age: 64 Year
  Sex: Female
  Weight: 97.51 kg

DRUGS (1)
  1. ALBUTEROL SULFATE. [Suspect]
     Active Substance: ALBUTEROL SULFATE
     Indication: ASTHMA
     Dosage: 90 TO 180 MCG, PRN
     Route: 055
     Dates: start: 202009, end: 202010

REACTIONS (2)
  - Drug ineffective [Unknown]
  - Device delivery system issue [Unknown]

NARRATIVE: CASE EVENT DATE: 202009
